FAERS Safety Report 19420288 (Version 5)
Quarter: 2021Q3

REPORT INFORMATION
  Report Type: Spontaneous
  Country: LT (occurrence: LT)
  Receive Date: 20210616
  Receipt Date: 20210708
  Transmission Date: 20211014
  Serious: Yes (Hospitalization, Other)
  Sender: FDA-Public Use
  Company Number: LT-AUROBINDO-AUR-APL-2021-024236

PATIENT
  Age: 21 Year
  Sex: Male

DRUGS (47)
  1. AMOXICILLIN. [Suspect]
     Active Substance: AMOXICILLIN
     Indication: ANTIBIOTIC THERAPY
     Dosage: UNK
     Route: 065
  2. AMOXICILLIN. [Suspect]
     Active Substance: AMOXICILLIN
     Indication: OROPHARYNGEAL PAIN
  3. CIPROFLOXACIN. [Suspect]
     Active Substance: CIPROFLOXACIN
     Dosage: 800 MILLIGRAM, ONCE A DAY
     Route: 042
  4. CIPROFLOXACIN. [Suspect]
     Active Substance: CIPROFLOXACIN
     Dosage: 400 MILLIGRAM
     Route: 042
  5. DIAZEPAM. [Suspect]
     Active Substance: DIAZEPAM
     Indication: PERSECUTORY DELUSION
     Dosage: UNK
     Route: 065
  6. DIAZEPAM. [Suspect]
     Active Substance: DIAZEPAM
     Indication: AGGRESSION
  7. HALOPERIDOL. [Suspect]
     Active Substance: HALOPERIDOL
     Indication: PSYCHOTIC DISORDER
     Dosage: UNK
     Route: 065
  8. TRIHEXYPHENIDYL [Suspect]
     Active Substance: TRIHEXYPHENIDYL
     Indication: PSYCHOTIC DISORDER
     Dosage: 4 MILLIGRAM, ONCE A DAY
     Route: 065
  9. TRIHEXYPHENIDYL [Suspect]
     Active Substance: TRIHEXYPHENIDYL
     Indication: EXTRAPYRAMIDAL DISORDER
     Dosage: 8 MILLIGRAM, ONCE A DAY
     Route: 065
  10. OLANZAPINE. [Suspect]
     Active Substance: OLANZAPINE
     Indication: PSYCHOTIC DISORDER
     Dosage: 20 MILLIGRAM, ONCE A DAY
     Route: 065
  11. AMOXICILLIN. [Suspect]
     Active Substance: AMOXICILLIN
     Indication: INFLAMMATORY MARKER INCREASED
     Dosage: 1500 MILLIGRAM, ONCE A DAY
     Route: 048
  12. HALOPERIDOL. [Suspect]
     Active Substance: HALOPERIDOL
     Indication: AGGRESSION
     Dosage: 20 MILLIGRAM, ONCE A DAY
     Route: 065
  13. IBUPROFEN. [Suspect]
     Active Substance: IBUPROFEN
     Indication: PYREXIA
     Dosage: UNK
     Route: 065
  14. TRIHEXYPHENIDYL [Suspect]
     Active Substance: TRIHEXYPHENIDYL
     Indication: PERSECUTORY DELUSION
     Dosage: UNK
     Route: 065
  15. TRIHEXYPHENIDYL [Suspect]
     Active Substance: TRIHEXYPHENIDYL
     Indication: AGGRESSION
  16. OLANZAPINE. [Suspect]
     Active Substance: OLANZAPINE
     Indication: ABNORMAL BEHAVIOUR
     Dosage: UNK
     Route: 065
  17. OLANZAPINE. [Suspect]
     Active Substance: OLANZAPINE
     Indication: PERSECUTORY DELUSION
     Dosage: 15 MILLIGRAM, ONCE A DAY
     Route: 048
  18. CARBAMAZEPINE. [Suspect]
     Active Substance: CARBAMAZEPINE
     Indication: ABNORMAL BEHAVIOUR
     Dosage: 300 MILLIGRAM, ONCE A DAY
     Route: 048
  19. CARBAMAZEPINE. [Suspect]
     Active Substance: CARBAMAZEPINE
     Dosage: 900 MILLIGRAM, ONCE A DAY
     Route: 048
  20. DEXAMETHASONE. [Suspect]
     Active Substance: DEXAMETHASONE
     Indication: RASH
     Dosage: 12 MILLIGRAM, ONCE A DAY
     Route: 042
  21. DIAZEPAM. [Suspect]
     Active Substance: DIAZEPAM
     Indication: PSYCHOTIC DISORDER
     Dosage: 15 MILLIGRAM, ONCE A DAY
     Route: 065
  22. HUMAN COAGULATION FACTOR VIII [Suspect]
     Active Substance: ANTIHEMOPHILIC FACTOR HUMAN
     Indication: HAEMOPHILIA
     Dosage: 1000 INTERNATIONAL UNIT
     Route: 065
  23. HUMAN COAGULATION FACTOR VIII [Suspect]
     Active Substance: ANTIHEMOPHILIC FACTOR HUMAN
     Indication: PROPHYLAXIS
     Dosage: UNK
     Route: 065
  24. QUETIAPINE. [Suspect]
     Active Substance: QUETIAPINE
     Dosage: 300 MILLIGRAM, ONCE A DAY
     Route: 048
  25. TRIHEXYPHENIDYL [Suspect]
     Active Substance: TRIHEXYPHENIDYL
     Indication: PSYCHOMOTOR HYPERACTIVITY
  26. CLEMASTINE [Suspect]
     Active Substance: CLEMASTINE
     Dosage: UNK
     Route: 065
  27. HALOPERIDOL. [Suspect]
     Active Substance: HALOPERIDOL
     Indication: PSYCHOMOTOR HYPERACTIVITY
  28. TRIHEXYPHENIDYL [Suspect]
     Active Substance: TRIHEXYPHENIDYL
     Indication: PSYCHOTIC SYMPTOM
     Dosage: 6 MILLIGRAM, ONCE A DAY
     Route: 048
  29. CARBAMAZEPINE. [Suspect]
     Active Substance: CARBAMAZEPINE
     Indication: PERSECUTORY DELUSION
     Dosage: 600 MILLIGRAM, ONCE A DAY
     Route: 048
  30. CIPROFLOXACIN. [Suspect]
     Active Substance: CIPROFLOXACIN
     Indication: INFLAMMATORY MARKER INCREASED
     Dosage: UNK
     Route: 065
  31. LORATADINE. [Suspect]
     Active Substance: LORATADINE
     Dosage: UNK
     Route: 065
  32. QUETIAPINE. [Suspect]
     Active Substance: QUETIAPINE
     Indication: PSYCHOTIC DISORDER
     Dosage: 500 MILLIGRAM, ONCE A DAY
     Route: 048
  33. AMOXICILLIN. [Suspect]
     Active Substance: AMOXICILLIN
     Indication: ORAL MUCOSAL ERUPTION
  34. CARBAMAZEPINE. [Suspect]
     Active Substance: CARBAMAZEPINE
     Indication: PSYCHOTIC DISORDER
     Dosage: UNK
     Route: 065
  35. CLEMASTINE [Suspect]
     Active Substance: CLEMASTINE
     Indication: VIRAL INFECTION
     Dosage: 2 MILLIGRAM, ONCE A DAY
     Route: 048
  36. LORATADINE. [Suspect]
     Active Substance: LORATADINE
     Indication: DERMATITIS ALLERGIC
     Dosage: 10 MILLIGRAM
     Route: 065
  37. CEFUROXIME. [Suspect]
     Active Substance: CEFUROXIME
     Indication: INFLAMMATORY MARKER INCREASED
     Dosage: 4.5 GRAM, ONCE A DAY
     Route: 042
  38. DIAZEPAM. [Suspect]
     Active Substance: DIAZEPAM
     Indication: PSYCHOMOTOR HYPERACTIVITY
     Dosage: 15 MILLIGRAM, ONCE A DAY
     Route: 048
  39. HALOPERIDOL. [Suspect]
     Active Substance: HALOPERIDOL
     Indication: PERSECUTORY DELUSION
  40. IBUPROFEN. [Suspect]
     Active Substance: IBUPROFEN
     Dosage: 400 MILLIGRAM, ONCE A DAY
     Route: 048
  41. FACTOR VIII [Concomitant]
     Active Substance: ANTIHEMOPHILIC FACTOR HUMAN
     Indication: PROPHYLAXIS
     Dosage: 1000 INTERNATIONAL UNIT
     Route: 042
  42. CEFUROXIME. [Suspect]
     Active Substance: CEFUROXIME
     Indication: SINUSITIS
     Dosage: UNK
     Route: 065
  43. DEXAMETHASONE. [Suspect]
     Active Substance: DEXAMETHASONE
     Indication: DERMATITIS ALLERGIC
     Dosage: UNK
     Route: 065
  44. DIAZEPAM. [Suspect]
     Active Substance: DIAZEPAM
     Indication: PSYCHOTIC SYMPTOM
  45. HALOPERIDOL. [Suspect]
     Active Substance: HALOPERIDOL
     Indication: PSYCHOTIC SYMPTOM
  46. LORATADINE. [Suspect]
     Active Substance: LORATADINE
     Indication: RASH
     Dosage: 20 MILLIGRAM, ONCE A DAY
     Route: 048
  47. FACTOR VIII [Concomitant]
     Active Substance: ANTIHEMOPHILIC FACTOR HUMAN
     Indication: HAEMOPHILIA

REACTIONS (10)
  - Drug ineffective for unapproved indication [Recovered/Resolved]
  - Inflammatory marker increased [Not Recovered/Not Resolved]
  - Splenomegaly [Unknown]
  - Oropharyngeal pain [Not Recovered/Not Resolved]
  - Acute hepatic failure [Unknown]
  - Product use in unapproved indication [Unknown]
  - Drug ineffective [Unknown]
  - Drug reaction with eosinophilia and systemic symptoms [Recovered/Resolved]
  - Extrapyramidal disorder [Recovered/Resolved]
  - Hepatic enzyme increased [Not Recovered/Not Resolved]
